FAERS Safety Report 12597104 (Version 2)
Quarter: 2016Q3

REPORT INFORMATION
  Report Type: Spontaneous
  Country: IT (occurrence: IT)
  Receive Date: 20160727
  Receipt Date: 20160803
  Transmission Date: 20161109
  Serious: Yes (Hospitalization)
  Sender: FDA-Public Use
  Company Number: IT-SUN PHARMACEUTICAL INDUSTRIES LTD-2016RR-120783

PATIENT
  Age: 62 Year
  Sex: Female

DRUGS (2)
  1. ABILIFY [Suspect]
     Active Substance: ARIPIPRAZOLE
     Indication: INTENTIONAL SELF-INJURY
     Dosage: 35 MG TOTAL
     Route: 048
     Dates: start: 20160625, end: 20160625
  2. CITALOPRAM [Suspect]
     Active Substance: CITALOPRAM HYDROBROMIDE
     Indication: INTENTIONAL SELF-INJURY
     Dosage: 15 ML TOTAL
     Route: 048
     Dates: start: 20160625, end: 20160625

REACTIONS (3)
  - Intentional self-injury [Recovered/Resolved]
  - Hypokinesia [Recovered/Resolved]
  - Drug abuse [Recovered/Resolved]

NARRATIVE: CASE EVENT DATE: 20160625
